FAERS Safety Report 15362181 (Version 1)
Quarter: 2018Q3

REPORT INFORMATION
  Report Type: Spontaneous
  Country: BR (occurrence: BR)
  Receive Date: 20180907
  Receipt Date: 20180907
  Transmission Date: 20181010
  Serious: Yes (Other)
  Sender: FDA-Public Use
  Company Number: PHHY2018BR092353

PATIENT
  Sex: Male
  Weight: 47 kg

DRUGS (1)
  1. RITALINA [Suspect]
     Active Substance: METHYLPHENIDATE HYDROCHLORIDE
     Indication: ATTENTION DEFICIT/HYPERACTIVITY DISORDER
     Dosage: 1 DF, QD (MONDAY TO FRIDAY)
     Route: 048
     Dates: start: 201112

REACTIONS (3)
  - Drug dependence [Unknown]
  - Disturbance in attention [Recovering/Resolving]
  - Nervousness [Recovering/Resolving]
